FAERS Safety Report 5585511-8 (Version None)
Quarter: 2008Q1

REPORT INFORMATION
  Report Type: 
  Country: None (occurrence: None)
  Receive Date: 20080109
  Receipt Date: 20080102
  Transmission Date: 20080703
  Serious: Yes (Hospitalization, Congenital Anomaly)
  Sender: FDA-Public Use
  Company Number: A0681938A

PATIENT
  Sex: Female
  Weight: 7.1 kg

DRUGS (7)
  1. PAXIL [Suspect]
     Indication: DEPRESSION
     Dosage: 20MG PER DAY
     Dates: start: 20010901, end: 20021201
  2. PRENATAL VITAMINS [Concomitant]
  3. TYLENOL [Concomitant]
  4. SUDAFED 12 HOUR [Concomitant]
  5. TUMS [Concomitant]
  6. IRON SUPPLEMENT [Concomitant]
  7. SEBULEX [Concomitant]
     Dates: end: 20011101

REACTIONS (14)
  - ATELECTASIS [None]
  - ATRIAL SEPTAL DEFECT [None]
  - CARDIAC MURMUR [None]
  - DILATATION ATRIAL [None]
  - DRUG EXPOSURE DURING PREGNANCY [None]
  - FOOT DEFORMITY [None]
  - HEART DISEASE CONGENITAL [None]
  - LEFT VENTRICULAR HYPERTROPHY [None]
  - MITRAL VALVE INCOMPETENCE [None]
  - PERICARDIAL EFFUSION [None]
  - POSTPERICARDIOTOMY SYNDROME [None]
  - TIBIAL TORSION [None]
  - TRICUSPID VALVE INCOMPETENCE [None]
  - VENTRICULAR SEPTAL DEFECT [None]
